FAERS Safety Report 5629529-5 (Version None)
Quarter: 2008Q1

REPORT INFORMATION
  Report Type: 
  Country: None (occurrence: None)
  Receive Date: 20080218
  Receipt Date: 20080205
  Transmission Date: 20080703
  Serious: Yes (Other)
  Sender: FDA-Public Use
  Company Number: US-ROCHE-545740

PATIENT
  Age: 59 Year
  Sex: Male

DRUGS (2)
  1. PEG-INTERFERON A-2A (RO 25-8310) [Suspect]
     Dosage: PATIENT IN 46 WEEK OF TREATMENT. FORM: PRE-FILLED SYRINGE (PFS)
     Route: 065
     Dates: start: 20070323
  2. RIBAVIRIN (NON-ROCHE) [Suspect]
     Dosage: PATIENT IN 46 WEEK OF TREATMENT.
     Route: 065
     Dates: start: 20070323

REACTIONS (2)
  - DEAFNESS [None]
  - TYMPANIC MEMBRANE PERFORATION [None]
